FAERS Safety Report 8573806-5 (Version None)
Quarter: 2012Q3

REPORT INFORMATION
  Report Type: 
  Country: None (occurrence: None)
  Receive Date: 20120806
  Receipt Date: 20110609
  Transmission Date: 20120928
  Serious: No
  Sender: FDA-Public Use
  Company Number: US-GLAXOSMITHKLINE-A0931915A

PATIENT
  Age: 79 Year
  Sex: Female

DRUGS (6)
  1. FLUTICASONE PROPIONATE [Suspect]
     Route: 055
  2. MOBIC [Concomitant]
  3. PRILOSEC [Concomitant]
  4. FLUTICASONE PROPIONATE [Suspect]
     Indication: ASTHMA
     Dosage: 2PUFF TWICE PER DAY
     Route: 055
     Dates: start: 20110101
  5. CALCIUM [Concomitant]
  6. PINDOLOL [Concomitant]

REACTIONS (1)
  - DYSPHONIA [None]
